FAERS Safety Report 22096013 (Version 2)
Quarter: 2023Q1

REPORT INFORMATION
  Report Type: Spontaneous
  Country: US (occurrence: US)
  Receive Date: 20230315
  Receipt Date: 20230327
  Transmission Date: 20230417
  Serious: No
  Sender: FDA-Public Use
  Company Number: US-JNJFOC-20230306098

PATIENT
  Age: 54 Year
  Sex: Female
  Weight: 113 kg

DRUGS (12)
  1. TYLENOL [Suspect]
     Active Substance: ACETAMINOPHEN
     Indication: Headache
     Route: 065
  2. TREPROSTINIL [Concomitant]
     Active Substance: TREPROSTINIL
     Indication: Pulmonary arterial hypertension
     Route: 050
  3. TREPROSTINIL [Concomitant]
     Active Substance: TREPROSTINIL
     Route: 050
  4. TREPROSTINIL [Concomitant]
     Active Substance: TREPROSTINIL
     Route: 050
  5. TREPROSTINIL [Concomitant]
     Active Substance: TREPROSTINIL
     Dates: start: 20230216
  6. TREPROSTINIL [Concomitant]
     Active Substance: TREPROSTINIL
     Route: 050
     Dates: start: 20221229
  7. TYVASO [Concomitant]
     Active Substance: TREPROSTINIL
     Indication: Pulmonary arterial hypertension
     Route: 050
  8. TYVASO [Concomitant]
     Active Substance: TREPROSTINIL
     Route: 050
  9. TYVASO [Concomitant]
     Active Substance: TREPROSTINIL
     Route: 050
  10. OPSUMIT [Concomitant]
     Active Substance: MACITENTAN
     Indication: Product used for unknown indication
     Route: 065
  11. TADALAFIL [Concomitant]
     Active Substance: TADALAFIL
     Indication: Product used for unknown indication
     Route: 065
  12. DILTIAZEM [Concomitant]
     Active Substance: DILTIAZEM
     Indication: Product used for unknown indication
     Route: 065

REACTIONS (1)
  - Therapeutic product effect incomplete [Unknown]
